FAERS Safety Report 22929806 (Version 4)
Quarter: 2024Q4

REPORT INFORMATION
  Report Type: Report from Study
  Country: US (occurrence: US)
  Receive Date: 20230911
  Receipt Date: 20241120
  Transmission Date: 20250115
  Serious: No
  Sender: NOVARTIS
  Company Number: US-002147023-NVSC2023US195847

PATIENT
  Age: 40 Year
  Sex: Male

DRUGS (1)
  1. KESIMPTA [Suspect]
     Active Substance: OFATUMUMAB
     Indication: Relapsing multiple sclerosis
     Dosage: 20 MG, UNKNOWN
     Route: 065
     Dates: start: 20230828

REACTIONS (3)
  - Influenza like illness [Recovered/Resolved]
  - Hangover [Unknown]
  - Drug ineffective [Unknown]

NARRATIVE: CASE EVENT DATE: 20230828
